FAERS Safety Report 6888242-7 (Version None)
Quarter: 2010Q3

REPORT INFORMATION
  Report Type: 
  Country: None (occurrence: None)
  Receive Date: 20100730
  Receipt Date: 20100722
  Transmission Date: 20110219
  Serious: Yes (Hospitalization, Congenital Anomaly)
  Sender: FDA-Public Use
  Company Number: GXKR2010DK08245

PATIENT
  Sex: Female
  Weight: 3 kg

DRUGS (2)
  1. MIRTAZAPINE [Suspect]
     Dosage: MATERNAL DOSE 30 MG, UNK
     Route: 064
  2. EFFEXOR [Concomitant]
     Dosage: MATERNAL DOSE 150 MILLIGRAM(S) 2X DAILY DOSE
     Route: 064

REACTIONS (2)
  - CLEFT LIP AND PALATE [None]
  - DRUG EXPOSURE DURING PREGNANCY [None]
